FAERS Safety Report 5715977-1 (Version None)
Quarter: 2008Q2

REPORT INFORMATION
  Report Type: 
  Country: None (occurrence: None)
  Receive Date: 20080424
  Receipt Date: 20080414
  Transmission Date: 20081010
  Serious: Yes (Hospitalization)
  Sender: FDA-Public Use
  Company Number: ES-ELI_LILLY_AND_COMPANY-ES200804004033

PATIENT
  Age: 78 Year
  Sex: Female

DRUGS (7)
  1. FORTEO [Suspect]
     Indication: OSTEOPOROSIS
     Dosage: 20 UG, UNKNOWN
     Route: 058
     Dates: start: 20080303
  2. TOBRAMYCIN [Concomitant]
     Dosage: UNK, 2/D
     Route: 065
  3. CAFINITRINA [Concomitant]
     Indication: CARDIAC DISORDER
     Dosage: UNK, UNKNOWN
     Route: 065
  4. SERETIDE [Concomitant]
     Dosage: UNK, UNKNOWN
     Route: 065
  5. DILUTOL [Concomitant]
     Dosage: 5 MG, UNKNOWN
     Route: 065
  6. EXERTIAL [Concomitant]
     Dosage: 10 MG, UNKNOWN
     Route: 065
  7. VENTOLIN [Concomitant]
     Dosage: UNK, UNKNOWN
     Route: 065

REACTIONS (1)
  - BRONCHIECTASIS [None]
